FAERS Safety Report 6779849-6 (Version None)
Quarter: 2010Q2

REPORT INFORMATION
  Report Type: 
  Country: None (occurrence: None)
  Receive Date: 20100618
  Receipt Date: 20100609
  Transmission Date: 20101027
  Serious: Yes (Hospitalization)
  Sender: FDA-Public Use
  Company Number: FR-PFIZER INC-2010071960

PATIENT
  Age: 50 Year
  Sex: Female

DRUGS (4)
  1. CELEBREX [Suspect]
     Dosage: 200 MG, 2X/DAY
     Route: 048
     Dates: start: 20030101, end: 20100422
  2. PLAQUENIL [Suspect]
     Dosage: UNK
     Route: 048
     Dates: start: 19850101
  3. LORAZEPAM [Suspect]
     Dosage: UNK
     Route: 048
     Dates: start: 20070101
  4. PROZAC [Suspect]
     Dosage: 1 DF, 2X/DAY
     Route: 048
     Dates: start: 20080101

REACTIONS (1)
  - ELECTROCARDIOGRAM QT PROLONGED [None]
